FAERS Safety Report 14210896 (Version 1)
Quarter: 2017Q4

REPORT INFORMATION
  Report Type: Spontaneous
  Country: US (occurrence: US)
  Receive Date: 20171121
  Receipt Date: 20171121
  Transmission Date: 20180321
  Serious: No
  Sender: FDA-Public Use
  Company Number: US-BAUSCH-BL-2017-025562

PATIENT
  Age: 28 Year
  Sex: Male
  Weight: 6.02 kg

DRUGS (3)
  1. LOTEMAX [Suspect]
     Active Substance: LOTEPREDNOL ETABONATE
     Dosage: ONE DROP EVERY OTHER DAY FOR TWO WEEKS
     Route: 047
     Dates: start: 201707, end: 201708
  2. LOTEMAX [Suspect]
     Active Substance: LOTEPREDNOL ETABONATE
     Dosage: ONE DROP DAILY FOR TWO WEEK
     Route: 047
     Dates: start: 201707, end: 201707
  3. LOTEMAX [Suspect]
     Active Substance: LOTEPREDNOL ETABONATE
     Indication: OCULAR HYPERAEMIA
     Dosage: THREE DROPS DAILY FOR ONE WEEK
     Route: 047
     Dates: start: 201707, end: 201707

REACTIONS (3)
  - Parosmia [Not Recovered/Not Resolved]
  - Dysgeusia [Not Recovered/Not Resolved]
  - Off label use [Recovered/Resolved]

NARRATIVE: CASE EVENT DATE: 201707
